FAERS Safety Report 13362531 (Version 1)
Quarter: 2017Q1

REPORT INFORMATION
  Report Type: Spontaneous
  Country: US (occurrence: US)
  Receive Date: 20170323
  Receipt Date: 20170323
  Transmission Date: 20170429
  Serious: No
  Sender: FDA-Public Use
  Company Number: US-PFIZER INC-2017121087

PATIENT
  Sex: Female

DRUGS (1)
  1. XELJANZ XR [Suspect]
     Active Substance: TOFACITINIB CITRATE
     Dosage: 11 MG, UNK

REACTIONS (9)
  - Dactylitis [Unknown]
  - Joint swelling [Unknown]
  - Rheumatic disorder [Unknown]
  - Finger deformity [Not Recovered/Not Resolved]
  - Synovitis [Not Recovered/Not Resolved]
  - Myofascial pain syndrome [Unknown]
  - Laboratory test abnormal [Unknown]
  - Weight decreased [Unknown]
  - Fatigue [Unknown]

NARRATIVE: CASE EVENT DATE: 201703
